FAERS Safety Report 7998323-2 (Version None)
Quarter: 2011Q4

REPORT INFORMATION
  Report Type: 
  Country: None (occurrence: None)
  Receive Date: 20111221
  Receipt Date: 20110711
  Transmission Date: 20120403
  Serious: No
  Sender: FDA-Public Use
  Company Number: US-GLAXOSMITHKLINE-A0936302A

PATIENT
  Age: 77 Year
  Sex: Female

DRUGS (7)
  1. VITAMIN D [Concomitant]
  2. LIPITOR [Concomitant]
  3. ASPIRIN [Concomitant]
  4. CALCIUM [Concomitant]
  5. LOVAZA [Suspect]
     Dosage: 2G TWICE PER DAY
     Route: 048
     Dates: start: 20110201
  6. HYDROXYUREA [Concomitant]
  7. PLAVIX [Concomitant]

REACTIONS (1)
  - PLATELET COUNT INCREASED [None]
